FAERS Safety Report 8416962-1 (Version None)
Quarter: 2012Q2

REPORT INFORMATION
  Report Type: 
  Country: None (occurrence: None)
  Receive Date: 20120530
  Receipt Date: 20120518
  Transmission Date: 20120825
  Serious: Yes (Hospitalization)
  Sender: FDA-Public Use
  Company Number: 217587

PATIENT

DRUGS (4)
  1. VITAMINS NOS (VITAMINS NOS) [Concomitant]
  2. INNOHEP [Suspect]
     Indication: HYPERCOAGULATION
  3. ANTIOXIDANT NOS (SELETOP-C) [Concomitant]
  4. FOLIC ACID [Concomitant]

REACTIONS (4)
  - MATERNAL EXPOSURE DURING PREGNANCY [None]
  - PREMATURE SEPARATION OF PLACENTA [None]
  - CAESAREAN SECTION [None]
  - HYPERCOAGULATION [None]
